FAERS Safety Report 4368856-9 (Version None)
Quarter: 2004Q2

REPORT INFORMATION
  Report Type: 
  Country: None (occurrence: None)
  Receive Date: 20040525
  Receipt Date: 20040513
  Transmission Date: 20050107
  Serious: Yes (Hospitalization)
  Sender: FDA-Public Use
  Company Number: US-JNJFOC-20040502958

PATIENT
  Age: 73 Year
  Sex: Male

DRUGS (1)
  1. DURAGESIC [Suspect]
     Indication: PAIN
     Dosage: 250 UG/HR, TRANSDERMAL; 175 UG/HR, 1 IN 72 HOUR, TRANSDERMAL
     Route: 062
     Dates: start: 20040501

REACTIONS (3)
  - DEHYDRATION [None]
  - INADEQUATE ANALGESIA [None]
  - RETCHING [None]
